FAERS Safety Report 9601790 (Version 1)
Quarter: 2013Q4

REPORT INFORMATION
  Report Type: Spontaneous
  Country: US (occurrence: None)
  Receive Date: 20131004
  Receipt Date: 20131004
  Transmission Date: 20140711
  Serious: No
  Sender: FDA-Public Use
  Company Number: None

PATIENT
  Age: 89 Year
  Sex: Female
  Weight: 43.09 kg

DRUGS (6)
  1. CLEOCIN [Suspect]
     Indication: GINGIVITIS
     Dates: start: 20130904, end: 20130910
  2. CLEOCIN [Suspect]
     Indication: TOOTHACHE
     Dates: start: 20130904, end: 20130910
  3. MICARDIS HCT [Concomitant]
  4. ASPIRIN [Concomitant]
  5. SOLGAR VM 75 MULTI VITAMINS [Concomitant]
  6. CARLSON VIT D 400 IU [Concomitant]

REACTIONS (5)
  - Flatulence [None]
  - Diarrhoea [None]
  - Abdominal distension [None]
  - Urinary retention [None]
  - Constipation [None]
